FAERS Safety Report 20998515 (Version 1)
Quarter: 2022Q2

REPORT INFORMATION
  Report Type: Spontaneous
  Country: US (occurrence: None)
  Receive Date: 20220622
  Receipt Date: 20220622
  Transmission Date: 20220721
  Serious: Yes (Death)
  Sender: FDA-Public Use
  Company Number: None

PATIENT
  Age: 65 Year
  Sex: Male
  Weight: 79.8 kg

DRUGS (2)
  1. PACLITAXEL [Suspect]
     Active Substance: PACLITAXEL
     Indication: Lung neoplasm malignant
     Dosage: OTHER FREQUENCY : WEEKLY X 6 DOSES;?
     Route: 042
     Dates: start: 20220615, end: 20220615
  2. CARBOPLATIN [Concomitant]
     Active Substance: CARBOPLATIN
     Dates: start: 20220615, end: 20220615

REACTIONS (6)
  - Inappropriate schedule of product administration [None]
  - Diarrhoea [None]
  - Chronic obstructive pulmonary disease [None]
  - Drug hypersensitivity [None]
  - Unresponsive to stimuli [None]
  - Drug hypersensitivity [None]

NARRATIVE: CASE EVENT DATE: 20220615
